FAERS Safety Report 23099258 (Version 1)
Quarter: 2023Q4

REPORT INFORMATION
  Report Type: Spontaneous
  Country: US (occurrence: US)
  Receive Date: 20231024
  Receipt Date: 20231024
  Transmission Date: 20240110
  Serious: Yes (Life-Threatening, Hospitalization, Other)
  Sender: FDA-Public Use
  Company Number: US-LUPIN PHARMACEUTICALS INC.-2023-09125

PATIENT
  Age: 42 Year
  Sex: Female

DRUGS (6)
  1. AMLODIPINE [Suspect]
     Active Substance: AMLODIPINE BESYLATE
     Indication: Hypertension
     Dosage: UNK, INGESTING 52 PILLS OF AMLODIPINE 10 MG WITH A DOSE OF 520 MG
     Route: 048
  2. AMLODIPINE [Suspect]
     Active Substance: AMLODIPINE BESYLATE
     Indication: Suicide attempt
  3. AMLODIPINE [Suspect]
     Active Substance: AMLODIPINE BESYLATE
     Indication: Intentional overdose
  4. CALCIUM [Suspect]
     Active Substance: CALCIUM
     Indication: Overdose
     Dosage: UNK
     Route: 065
  5. GLUCAGON [Suspect]
     Active Substance: GLUCAGON\GLUCAGON HYDROCHLORIDE\WATER
     Indication: Overdose
     Dosage: UNK
     Route: 042
  6. INSULIN NOS [Suspect]
     Active Substance: INSULIN NOS
     Indication: Overdose
     Dosage: UNK
     Route: 065

REACTIONS (14)
  - Distributive shock [Unknown]
  - Hypotension [Unknown]
  - Hypoxia [Unknown]
  - Tachypnoea [Unknown]
  - Hypokalaemia [Unknown]
  - Lactic acidosis [Unknown]
  - Non-cardiogenic pulmonary oedema [Unknown]
  - Cardiac arrest [Unknown]
  - Brain injury [Unknown]
  - Toxicity to various agents [Unknown]
  - Intentional overdose [Unknown]
  - Suicide attempt [Unknown]
  - Drug ineffective for unapproved indication [Unknown]
  - Off label use [Unknown]
